FAERS Safety Report 9657710 (Version 1)
Quarter: 2013Q4

REPORT INFORMATION
  Report Type: Spontaneous
  Country: US (occurrence: US)
  Receive Date: 20131030
  Receipt Date: 20131030
  Transmission Date: 20140711
  Serious: Yes (Other)
  Sender: FDA-Public Use
  Company Number: US-TEVA-440677USA

PATIENT
  Sex: Female
  Weight: 68.55 kg

DRUGS (1)
  1. QVAR [Suspect]
     Indication: PRODUCT USED FOR UNKNOWN INDICATION

REACTIONS (5)
  - Organising pneumonia [Unknown]
  - Pulmonary embolism [Unknown]
  - Pneumonia [Unknown]
  - Chronic obstructive pulmonary disease [Unknown]
  - Hepatic enzyme increased [Not Recovered/Not Resolved]
